FAERS Safety Report 18655674 (Version 1)
Quarter: 2020Q4

REPORT INFORMATION
  Report Type: Spontaneous
  Country: GB (occurrence: GB)
  Receive Date: 20201223
  Receipt Date: 20201223
  Transmission Date: 20210114
  Serious: No
  Sender: FDA-Public Use
  Company Number: BELL -2020-0046

PATIENT

DRUGS (1)
  1. PARACETAMOL MOLECULE FROM UK MARKET [Suspect]
     Active Substance: ACETAMINOPHEN
     Route: 048

REACTIONS (2)
  - Insomnia [Unknown]
  - Nonspecific reaction [None]

NARRATIVE: CASE EVENT DATE: 20200711
